FAERS Safety Report 10796286 (Version 6)
Quarter: 2015Q2

REPORT INFORMATION
  Report Type: Spontaneous
  Country: JP (occurrence: JP)
  Receive Date: 20150216
  Receipt Date: 20150427
  Transmission Date: 20150821
  Serious: Yes (Other)
  Sender: FDA-Public Use
  Company Number: JP-UCBSA-2015004055

PATIENT
  Age: 17 Month
  Sex: Female

DRUGS (10)
  1. XYZALL [Suspect]
     Active Substance: LEVOCETIRIZINE DIHYDROCHLORIDE
     Indication: PRURITUS
     Dosage: 2.5 ML, ONCE DAILY (QD)
     Route: 048
     Dates: start: 20140711, end: 20141009
  2. LOCOID [Concomitant]
     Active Substance: HYDROCORTISONE BUTYRATE
     Indication: PRODUCT USED FOR UNKNOWN INDICATION
     Dosage: UNK
     Dates: start: 20140415
  3. ZADITEN [Concomitant]
     Active Substance: KETOTIFEN FUMARATE
     Indication: FEBRILE CONVULSION
     Dosage: 0.4 G, 2X/DAY (BID)
     Route: 048
     Dates: start: 20140415, end: 20141010
  4. DIAPP [Concomitant]
     Active Substance: DIAZEPAM
     Indication: FEBRILE CONVULSION
     Dosage: UNK
  5. NIZORAL [Concomitant]
     Active Substance: KETOCONAZOLE
     Indication: PRODUCT USED FOR UNKNOWN INDICATION
     Dosage: UNK
     Dates: start: 20140415
  6. XYZALL [Suspect]
     Active Substance: LEVOCETIRIZINE DIHYDROCHLORIDE
     Dosage: 2.5 ML, 2X/DAY (BID)
     Route: 048
     Dates: start: 20141010, end: 20150202
  7. XYZALL [Suspect]
     Active Substance: LEVOCETIRIZINE DIHYDROCHLORIDE
     Dosage: 2.5 ML, 2X/DAY (BID)
     Route: 048
     Dates: end: 201501
  8. XYZALL [Suspect]
     Active Substance: LEVOCETIRIZINE DIHYDROCHLORIDE
     Dosage: 2.5 ML, 2X/DAY (BID)
     Route: 048
     Dates: start: 20150213, end: 20150317
  9. XYZALL [Suspect]
     Active Substance: LEVOCETIRIZINE DIHYDROCHLORIDE
     Dosage: 1.6 TIMES OF DAILY DOSE;  FOR THREE DAYS
     Route: 048
  10. HIRUDOID [Concomitant]
     Active Substance: GLYCOSAMINOGLYCANS
     Indication: PRODUCT USED FOR UNKNOWN INDICATION
     Dosage: UNK
     Dates: start: 20140415

REACTIONS (9)
  - Seizure [Recovered/Resolved]
  - Disorientation [Unknown]
  - Febrile convulsion [Recovered/Resolved]
  - Pyrexia [Unknown]
  - Dizziness [Recovering/Resolving]
  - Loss of consciousness [Recovered/Resolved]
  - Somnolence [Unknown]
  - Overdose [Unknown]
  - Drug dispensing error [Unknown]

NARRATIVE: CASE EVENT DATE: 20141006
